FAERS Safety Report 5010675-4 (Version None)
Quarter: 2006Q2

REPORT INFORMATION
  Report Type: 
  Country: None (occurrence: None)
  Receive Date: 20060525
  Receipt Date: 20051213
  Transmission Date: 20061013
  Serious: Yes (Life-Threatening, Hospitalization, Other)
  Sender: FDA-Public Use
  Company Number: PHRM2005FR03242

PATIENT
  Age: 82 Year
  Sex: Male

DRUGS (10)
  1. CLOZAPINE [Suspect]
     Indication: PARAPHILIA
     Dosage: 12.5 MG, QD
     Route: 048
     Dates: start: 20050610, end: 20050829
  2. LEVODOPA [Concomitant]
  3. VALSARTAN [Concomitant]
  4. ATENOLOL [Concomitant]
  5. PAROXETINE [Concomitant]
  6. ACARBOSE [Concomitant]
  7. CLOPIDOGREL [Concomitant]
  8. OMEPRAZOLE [Concomitant]
  9. LORMETAZEPAM [Concomitant]
  10. GLICLAZIDE [Concomitant]

REACTIONS (7)
  - AGRANULOCYTOSIS [None]
  - CONFUSIONAL STATE [None]
  - LEUKOPENIA [None]
  - MYELOID MATURATION ARREST [None]
  - NEUTROPHIL COUNT DECREASED [None]
  - PSYCHOMOTOR RETARDATION [None]
  - PYREXIA [None]
